FAERS Safety Report 4444791-2 (Version None)
Quarter: 2004Q3

REPORT INFORMATION
  Report Type: 
  Country: None (occurrence: None)
  Receive Date: 20040909
  Receipt Date: 20040701
  Transmission Date: 20050211
  Serious: Yes (Life-Threatening, Hospitalization, Other)
  Sender: FDA-Public Use
  Company Number: US-MERCK-0407USA00168

PATIENT
  Age: 32 Year
  Sex: Female
  Weight: 99 kg

DRUGS (2)
  1. VIOXX [Suspect]
     Indication: FIBROMYALGIA
     Route: 048
  2. VIOXX [Suspect]
     Indication: SYSTEMIC LUPUS ERYTHEMATOSUS
     Route: 048

REACTIONS (1)
  - UPPER GASTROINTESTINAL HAEMORRHAGE [None]
